FAERS Safety Report 9919660 (Version 1)
Quarter: 2014Q1

REPORT INFORMATION
  Report Type: Spontaneous
  Country: IT (occurrence: IT)
  Receive Date: 20140224
  Receipt Date: 20140224
  Transmission Date: 20141002
  Serious: Yes (Life-Threatening)
  Sender: FDA-Public Use
  Company Number: IT-PFIZER INC-2014049012

PATIENT
  Age: 26 Year
  Sex: Female

DRUGS (7)
  1. TRIATEC [Suspect]
     Indication: INTENTIONAL SELF-INJURY
     Dosage: 5 MILLIGRAM(S);TOTAL
     Route: 048
     Dates: start: 20140205, end: 20140205
  2. XATRAL [Suspect]
     Indication: INTENTIONAL SELF-INJURY
     Dosage: 5 MILLIGRAM(S);TOTAL
     Route: 048
     Dates: start: 20140205, end: 20140205
  3. CONGESCOR [Suspect]
     Indication: INTENTIONAL SELF-INJURY
     Dosage: 5 MILLIGRAM(S);TOTAL
     Route: 048
     Dates: start: 20140205, end: 20140205
  4. LASIX [Suspect]
     Indication: INTENTIONAL SELF-INJURY
     Dosage: 100 MILLIGRAM(S);TOTAL
     Route: 048
     Dates: start: 20140205, end: 20140205
  5. LOBIVON [Suspect]
     Indication: INTENTIONAL SELF-INJURY
     Dosage: 25 MILLIGRAM(S);TOTAL
     Route: 048
     Dates: start: 20140205, end: 20140205
  6. SPIRIVA [Suspect]
     Indication: INTENTIONAL SELF-INJURY
     Dosage: 90 MICROGRAM(S);TOTAL
     Route: 048
     Dates: start: 20140205, end: 20140205
  7. CARDIOASPIRIN [Suspect]
     Indication: INTENTIONAL SELF-INJURY
     Dosage: 100 MILLIGRAM(S);TOTAL
     Route: 048
     Dates: start: 20140205, end: 20140205

REACTIONS (2)
  - Drug abuse [Recovered/Resolved]
  - Vomiting [Recovered/Resolved]
